FAERS Safety Report 8402673-5 (Version None)
Quarter: 2012Q2

REPORT INFORMATION
  Report Type: 
  Country: None (occurrence: None)
  Receive Date: 20120601
  Receipt Date: 20120518
  Transmission Date: 20120825
  Serious: Yes (Other)
  Sender: FDA-Public Use
  Company Number: US-SHIONOGI, INC-2012000176

PATIENT
  Age: 10 Year
  Sex: Male

DRUGS (4)
  1. PERMETHRIN [Concomitant]
     Dosage: UNK
     Dates: start: 20120501
  2. OLIVE OIL [Concomitant]
     Dosage: UNK
  3. ULESFIA [Suspect]
     Indication: LICE INFESTATION
     Dosage: 3/4 OF ONE 8-OUNCE BOTTLE
     Route: 061
     Dates: start: 20120514, end: 20120514
  4. TEA TREE OIL [Concomitant]
     Dosage: UNK
     Route: 061
     Dates: start: 20120501

REACTIONS (4)
  - PSYCHOMOTOR HYPERACTIVITY [None]
  - CHEST PAIN [None]
  - PARAESTHESIA [None]
  - DYSPNOEA [None]
